FAERS Safety Report 5797984-6 (Version None)
Quarter: 2008Q3

REPORT INFORMATION
  Report Type: 
  Country: None (occurrence: None)
  Receive Date: 20080702
  Receipt Date: 20080626
  Transmission Date: 20090109
  Serious: Yes (Hospitalization)
  Sender: FDA-Public Use
  Company Number: JP-ASTRAZENECA-2008AP04575

PATIENT
  Age: 25893 Day
  Sex: Male
  Weight: 52 kg

DRUGS (9)
  1. OMEPRAL TABLETS [Suspect]
     Indication: REFLUX OESOPHAGITIS
     Route: 048
     Dates: start: 20080507, end: 20080606
  2. NORVASC [Concomitant]
     Indication: HYPERTENSION
     Route: 048
     Dates: start: 20080205
  3. PRIMPERAN TAB [Concomitant]
     Indication: GASTROENTERITIS
     Route: 048
     Dates: start: 20080530, end: 20080605
  4. NAUZELIN [Concomitant]
     Indication: NAUSEA
     Route: 048
     Dates: start: 20080606, end: 20080606
  5. BIO-THREE [Concomitant]
     Indication: DIARRHOEA
     Dosage: NUMBER OF SEPARATE DOSAGES UNKNOWN
     Route: 048
     Dates: start: 20080530, end: 20080606
  6. NYROZIN [Concomitant]
     Indication: FATIGUE
     Dosage: NUMBER OF SEPARATE DOSAGES UNKNOWN
     Route: 042
     Dates: start: 20080530, end: 20080605
  7. PRIMPERAN TAB [Concomitant]
     Indication: NAUSEA
     Dosage: NUMBER OF SEPARATE DOSAGES UNKNOWN
     Route: 042
     Dates: start: 20080530, end: 20080605
  8. LACTEC-D [Concomitant]
     Route: 042
     Dates: start: 20080602
  9. VITA C [Concomitant]
     Dosage: NUMBER OF SEPARATE DOSAGES UNKNOWN
     Route: 042
     Dates: start: 20080602

REACTIONS (1)
  - RENAL FAILURE ACUTE [None]
